FAERS Safety Report 15336386 (Version 7)
Quarter: 2019Q1

REPORT INFORMATION
  Report Type: Spontaneous
  Country: US (occurrence: US)
  Receive Date: 20180830
  Receipt Date: 20190119
  Transmission Date: 20190417
  Serious: Yes (Hospitalization)
  Sender: FDA-Public Use
  Company Number: US-ACTELION-A-US2018-173446

PATIENT
  Age: 65 Year
  Sex: Female

DRUGS (9)
  1. DAPTOMICINA [Concomitant]
     Active Substance: DAPTOMYCIN
  2. OPSUMIT [Suspect]
     Active Substance: MACITENTAN
     Indication: PULMONARY ARTERIAL HYPERTENSION
     Dosage: 10 MG, QD
     Route: 048
     Dates: start: 20170208
  3. ADEMPAS [Concomitant]
     Active Substance: RIOCIGUAT
     Dosage: 2 MG, TID
     Dates: start: 20160819
  4. ADEMPAS [Concomitant]
     Active Substance: RIOCIGUAT
     Dosage: 2.5 MG, TID
     Route: 065
  5. ADEMPAS [Concomitant]
     Active Substance: RIOCIGUAT
     Dosage: 2.5 MG, QD
  6. ERTAPENEM. [Suspect]
     Active Substance: ERTAPENEM SODIUM
     Indication: LOCALISED INFECTION
     Dosage: UNK
     Route: 065
     Dates: end: 20181229
  7. ORENITRAM [Concomitant]
     Active Substance: TREPROSTINIL
     Dosage: 0.875 MG, TID
     Route: 065
     Dates: start: 20180130
  8. ORENITRAM [Concomitant]
     Active Substance: TREPROSTINIL
     Dosage: 1 MG, TID
     Dates: start: 20180130
  9. ORENITRAM [Concomitant]
     Active Substance: TREPROSTINIL
     Dosage: 0.75 MG, TID
     Route: 048

REACTIONS (24)
  - Hypomagnesaemia [Unknown]
  - Hypotension [Unknown]
  - Urinary tract infection [Unknown]
  - Confusional state [Unknown]
  - Vomiting [Recovered/Resolved]
  - Gastric infection [Recovered/Resolved]
  - Arthritis bacterial [Unknown]
  - Influenza [Unknown]
  - Iron deficiency anaemia [Recovering/Resolving]
  - Intracranial aneurysm [Not Recovered/Not Resolved]
  - Nausea [Recovering/Resolving]
  - Ischaemia [Unknown]
  - Wound [Recovering/Resolving]
  - Amputation [Unknown]
  - Gastrointestinal pain [Not Recovered/Not Resolved]
  - Diarrhoea [Recovering/Resolving]
  - Constipation [Recovered/Resolved]
  - Malaise [Recovered/Resolved]
  - Osteomyelitis [Unknown]
  - Seizure [Recovered/Resolved]
  - Dyspnoea [Recovered/Resolved]
  - Localised infection [Recovering/Resolving]
  - Crepitations [Unknown]
  - Cellulitis [Recovered/Resolved]

NARRATIVE: CASE EVENT DATE: 201805
